FAERS Safety Report 16906376 (Version 10)
Quarter: 2021Q3

REPORT INFORMATION
  Report Type: Report from Study
  Country: None (occurrence: FR)
  Receive Date: 20191011
  Receipt Date: 20210724
  Transmission Date: 20211014
  Serious: Yes (Death, Other)
  Sender: FDA-Public Use
  Company Number: FR-ABBVIE-19K-056-2956791-00

PATIENT
  Age: 66 Year
  Sex: Female

DRUGS (22)
  1. VENCLYXTO [Suspect]
     Active Substance: VENETOCLAX
     Indication: CHRONIC LYMPHOCYTIC LEUKAEMIA
     Route: 048
     Dates: start: 20181213, end: 20181219
  2. VENCLYXTO [Suspect]
     Active Substance: VENETOCLAX
     Dosage: TEMPORALLY STOPPING TREATMENT
     Route: 048
     Dates: start: 20190114, end: 201901
  3. FASTURTEC [Concomitant]
     Active Substance: RASBURICASE
     Indication: FLUID REPLACEMENT
     Route: 065
     Dates: start: 20181213
  4. BACTRIM [Concomitant]
     Active Substance: SULFAMETHOXAZOLE\TRIMETHOPRIM
     Indication: INFECTION PROPHYLAXIS
     Route: 065
     Dates: start: 20181216
  5. ZELITREX [Concomitant]
     Active Substance: VALACYCLOVIR HYDROCHLORIDE
     Indication: INFECTION PROPHYLAXIS
     Route: 065
     Dates: start: 20181216
  6. CORTANCYL [Concomitant]
     Active Substance: PREDNISONE
     Indication: PRODUCT USED FOR UNKNOWN INDICATION
     Route: 065
     Dates: start: 2018, end: 20181223
  7. GRANOCYTE [Concomitant]
     Active Substance: LENOGRASTIM
     Indication: PRODUCT USED FOR UNKNOWN INDICATION
     Route: 065
     Dates: start: 20181216
  8. VENCLYXTO [Suspect]
     Active Substance: VENETOCLAX
     Route: 048
     Dates: start: 20181220, end: 20181226
  9. VENCLYXTO [Suspect]
     Active Substance: VENETOCLAX
     Route: 048
     Dates: start: 20181227, end: 20190102
  10. VENCLYXTO [Suspect]
     Active Substance: VENETOCLAX
     Route: 048
     Dates: start: 20190110, end: 20190113
  11. VENCLYXTO [Suspect]
     Active Substance: VENETOCLAX
     Route: 048
     Dates: start: 201902, end: 20190403
  12. LASILIX [Concomitant]
     Active Substance: FUROSEMIDE
     Indication: FLUID OVERLOAD
     Route: 065
     Dates: start: 20181213
  13. LOVENOX [Concomitant]
     Active Substance: ENOXAPARIN SODIUM
     Indication: ANTICOAGULANT THERAPY
     Route: 065
     Dates: start: 2018
  14. VENCLYXTO [Suspect]
     Active Substance: VENETOCLAX
     Dosage: TEMPORALLY STOPPING TREATMENT
     Route: 048
     Dates: start: 201902, end: 201902
  15. VENCLYXTO [Suspect]
     Active Substance: VENETOCLAX
     Dosage: TEMPORARY STOP
     Route: 048
     Dates: start: 20190404, end: 20190407
  16. VENCLYXTO [Suspect]
     Active Substance: VENETOCLAX
     Dosage: TEMPORALLY STOPPING TREATMENT
     Route: 048
     Dates: start: 201901, end: 201902
  17. ZOPHREN [Concomitant]
     Active Substance: ONDANSETRON
     Indication: NAUSEA
     Route: 065
     Dates: start: 20181216
  18. VENCLYXTO [Suspect]
     Active Substance: VENETOCLAX
     Route: 048
     Dates: start: 20190103, end: 20190109
  19. VENCLYXTO [Suspect]
     Active Substance: VENETOCLAX
     Route: 048
     Dates: start: 201901, end: 201901
  20. VENCLYXTO [Suspect]
     Active Substance: VENETOCLAX
     Route: 048
     Dates: start: 20190408, end: 20190706
  21. IMOVANE [Concomitant]
     Active Substance: ZOPICLONE
     Indication: PRODUCT USED FOR UNKNOWN INDICATION
     Route: 065
     Dates: start: 2018
  22. RITUXIMAB. [Concomitant]
     Active Substance: RITUXIMAB
     Indication: CHRONIC LYMPHOCYTIC LEUKAEMIA
     Route: 065
     Dates: start: 20190114, end: 20190603

REACTIONS (32)
  - Renal failure [Not Recovered/Not Resolved]
  - Febrile neutropenia [Recovered/Resolved]
  - Chronic lymphocytic leukaemia transformation [Not Recovered/Not Resolved]
  - Off label use [Unknown]
  - Tumour lysis syndrome [Recovered/Resolved]
  - Thrombocytopenia [Recovered/Resolved]
  - General physical health deterioration [Recovered/Resolved with Sequelae]
  - Dyspepsia [Not Recovered/Not Resolved]
  - Pain of skin [Not Recovered/Not Resolved]
  - Neutropenia [Not Recovered/Not Resolved]
  - Bronchitis [Recovered/Resolved]
  - Anaemia [Not Recovered/Not Resolved]
  - Neutropenia [Recovered/Resolved]
  - Blood sodium increased [Recovered/Resolved]
  - Neutropenia [Recovered/Resolved]
  - Diffuse large B-cell lymphoma [Not Recovered/Not Resolved]
  - Neutropenia [Recovered/Resolved]
  - Neutropenia [Recovered/Resolved]
  - General physical condition abnormal [Fatal]
  - Thrombocytopenia [Not Recovered/Not Resolved]
  - Weight decreased [Not Recovered/Not Resolved]
  - Neutropenia [Recovered/Resolved]
  - Hypercalcaemia [Fatal]
  - Richter^s syndrome [Unknown]
  - Ecchymosis [Not Recovered/Not Resolved]
  - Pyrexia [Not Recovered/Not Resolved]
  - Tumour lysis syndrome [Recovered/Resolved]
  - Anaemia [Recovered/Resolved]
  - Back pain [Not Recovered/Not Resolved]
  - Aphthous ulcer [Not Recovered/Not Resolved]
  - Asthenia [Not Recovered/Not Resolved]
  - Hyperuricaemia [Not Recovered/Not Resolved]

NARRATIVE: CASE EVENT DATE: 20181213
